FAERS Safety Report 17075340 (Version 3)
Quarter: 2020Q3

REPORT INFORMATION
  Report Type: Spontaneous
  Country: CA (occurrence: CA)
  Receive Date: 20191126
  Receipt Date: 20200924
  Transmission Date: 20201102
  Serious: Yes (Other)
  Sender: FDA-Public Use
  Company Number: CA-PFIZER INC-2019509215

PATIENT
  Age: 35 Year
  Sex: Male
  Weight: 61 kg

DRUGS (7)
  1. INFLECTRA [Concomitant]
     Active Substance: INFLIXIMAB-DYYB
     Indication: CROHN^S DISEASE
     Dosage: 307 MG AT 0, 2, 6 WEEKS, THEN EVERY 8 WEEKS
     Route: 042
     Dates: start: 20191210
  2. FOLIC ACID. [Concomitant]
     Active Substance: FOLIC ACID
     Dosage: UNK, CYCLIC, 6X/WEEK
     Dates: start: 201911
  3. VITAMIN D [COLECALCIFEROL] [Concomitant]
     Active Substance: CHOLECALCIFEROL
     Dosage: UNK
     Route: 065
  4. INFLECTRA [Concomitant]
     Active Substance: INFLIXIMAB-DYYB
     Dosage: 307 MG AT 0, 2, 6 WEEKS, THEN EVERY 8 WEEKS
     Route: 042
     Dates: start: 20200904
  5. METHOTREXATE SODIUM. [Suspect]
     Active Substance: METHOTREXATE SODIUM
     Dosage: 15 MG, WEEKLY
     Route: 048
     Dates: start: 20191105
  6. ENTOCORT [Concomitant]
     Active Substance: BUDESONIDE
     Dosage: UNK
     Dates: start: 20191105
  7. VITAMIN B12 [MECOBALAMIN] [Concomitant]
     Dosage: UNK
     Route: 065

REACTIONS (9)
  - Muscle spasms [Unknown]
  - Myalgia [Unknown]
  - Haemophagocytic lymphohistiocytosis [Unknown]
  - Drug intolerance [Unknown]
  - Impaired driving ability [Unknown]
  - Nausea [Not Recovered/Not Resolved]
  - Diarrhoea [Unknown]
  - Dizziness [Unknown]
  - Abdominal pain [Unknown]
